FAERS Safety Report 5497925-5 (Version None)
Quarter: 2007Q4

REPORT INFORMATION
  Report Type: 
  Country: None (occurrence: None)
  Receive Date: 20071025
  Receipt Date: 20070718
  Transmission Date: 20080405
  Serious: Yes (Hospitalization)
  Sender: FDA-Public Use
  Company Number: US-SANOFI-SYNTHELABO-A03200702349

PATIENT
  Sex: Female
  Weight: 68 kg

DRUGS (6)
  1. ALCOHOL [Concomitant]
     Indication: DRUG USE FOR UNKNOWN INDICATION
     Dosage: UNK
     Route: 048
  2. FOSAMAX [Concomitant]
     Indication: DRUG USE FOR UNKNOWN INDICATION
     Dosage: UNK
     Route: 065
  3. EFFEXOR [Concomitant]
     Indication: DRUG USE FOR UNKNOWN INDICATION
     Dosage: UNK
     Route: 065
     Dates: end: 20050401
  4. AMBIEN [Suspect]
     Indication: INSOMNIA
     Route: 048
     Dates: start: 19910101, end: 20050401
  5. AMBIEN [Suspect]
     Route: 048
     Dates: start: 20050101, end: 20050101
  6. PROZAC [Concomitant]
     Indication: DRUG USE FOR UNKNOWN INDICATION
     Dosage: UNK
     Route: 048

REACTIONS (10)
  - AMNESIA [None]
  - ANKLE FRACTURE [None]
  - ANXIETY [None]
  - CONCUSSION [None]
  - FALL [None]
  - INJURY [None]
  - LOWER LIMB FRACTURE [None]
  - ROAD TRAFFIC ACCIDENT [None]
  - SOMNAMBULISM [None]
  - WEIGHT DECREASED [None]
